FAERS Safety Report 14756807 (Version 2)
Quarter: 2018Q2

REPORT INFORMATION
  Report Type: Spontaneous
  Country: US (occurrence: US)
  Receive Date: 20180413
  Receipt Date: 20180422
  Transmission Date: 20180711
  Serious: Yes (Death, Hospitalization, Other)
  Sender: FDA-Public Use
  Company Number: US-APOTEX-2018AP009833

PATIENT
  Age: 73 Year
  Sex: Female
  Weight: 90 kg

DRUGS (14)
  1. FENTANYL. [Suspect]
     Active Substance: FENTANYL
     Indication: PRODUCT USED FOR UNKNOWN INDICATION
     Dosage: 1000 MG, UNK
     Route: 042
     Dates: start: 20171126, end: 20171207
  2. FENTANYL. [Suspect]
     Active Substance: FENTANYL
     Dosage: 25 ?G, EVERY HOUR
     Route: 042
     Dates: start: 20171211, end: 20171211
  3. ISAVUCONAZONIUM SULFATE [Suspect]
     Active Substance: ISAVUCONAZONIUM SULFATE
     Dosage: 372 MG, QD
     Route: 048
     Dates: start: 20171201, end: 20171213
  4. WELLBUTRIN [Concomitant]
     Active Substance: BUPROPION HYDROCHLORIDE
     Indication: PRODUCT USED FOR UNKNOWN INDICATION
     Dosage: UNK
     Route: 065
     Dates: start: 20171113, end: 20171130
  5. MICAFUNGIN SODIUM [Concomitant]
     Active Substance: MICAFUNGIN SODIUM
     Indication: PRODUCT USED FOR UNKNOWN INDICATION
     Dosage: UNK
     Route: 065
     Dates: start: 20171113, end: 20171127
  6. PHYTONADIONE. [Concomitant]
     Active Substance: PHYTONADIONE
     Indication: PRODUCT USED FOR UNKNOWN INDICATION
     Dosage: UNK
     Route: 065
     Dates: start: 20171113, end: 20171225
  7. HYDROMORPHONE [Concomitant]
     Active Substance: HYDROMORPHONE
     Indication: PRODUCT USED FOR UNKNOWN INDICATION
     Dosage: UNK
     Route: 065
     Dates: start: 20171114, end: 20171207
  8. VANCOMYCIN [Concomitant]
     Active Substance: VANCOMYCIN
     Indication: PRODUCT USED FOR UNKNOWN INDICATION
     Dosage: UNK
     Route: 065
     Dates: start: 20171118, end: 20171124
  9. FENTANYL. [Suspect]
     Active Substance: FENTANYL
     Dosage: 1000 MG, UNK
     Route: 042
     Dates: start: 20171207, end: 20171207
  10. FENTANYL. [Suspect]
     Active Substance: FENTANYL
     Dosage: 25 ?G, EVERY 2 HOURS
     Route: 042
     Dates: start: 20171210, end: 20171210
  11. ISAVUCONAZONIUM SULFATE [Suspect]
     Active Substance: ISAVUCONAZONIUM SULFATE
     Indication: ANTIFUNGAL PROPHYLAXIS
     Dosage: 372 MG, EVERY 8 HOURS
     Route: 042
     Dates: start: 20171128, end: 20171130
  12. POTASSIUM CHLORIDE. [Concomitant]
     Active Substance: POTASSIUM CHLORIDE
     Indication: PRODUCT USED FOR UNKNOWN INDICATION
     Dosage: UNK
     Route: 065
     Dates: start: 20171114, end: 20171218
  13. CEFEPIME [Suspect]
     Active Substance: CEFEPIME HYDROCHLORIDE
     Indication: ENTEROCOCCAL INFECTION
     Dosage: 2 G, EVERY 12 HOURS
     Route: 042
     Dates: start: 20171126, end: 20171130
  14. CIPROFLOXACIN. [Concomitant]
     Active Substance: CIPROFLOXACIN
     Indication: PRODUCT USED FOR UNKNOWN INDICATION
     Dosage: UNK
     Route: 065
     Dates: start: 20171116, end: 20171124

REACTIONS (10)
  - Fluid overload [Not Recovered/Not Resolved]
  - Multiple organ dysfunction syndrome [Fatal]
  - Metabolic acidosis [Not Recovered/Not Resolved]
  - Acute respiratory failure [Unknown]
  - Pleural effusion [Not Recovered/Not Resolved]
  - Transplant failure [Fatal]
  - Candida sepsis [Fatal]
  - Enterococcal sepsis [Fatal]
  - Acute kidney injury [Not Recovered/Not Resolved]
  - Encephalopathy [Unknown]

NARRATIVE: CASE EVENT DATE: 20171202
